FAERS Safety Report 20996671 (Version 3)
Quarter: 2023Q4

REPORT INFORMATION
  Report Type: Other
  Country: JP (occurrence: JP)
  Receive Date: 20220623
  Receipt Date: 20231115
  Transmission Date: 20240110
  Serious: Yes (Hospitalization, Other)
  Sender: FDA-Public Use
  Company Number: JP-CHUGAI-2021000641AA

PATIENT
  Age: 13 Year
  Sex: Female

DRUGS (2)
  1. CELLCEPT [Suspect]
     Active Substance: MYCOPHENOLATE MOFETIL
     Indication: Kidney transplant rejection
     Route: 048
  2. RITUXIMAB [Concomitant]
     Active Substance: RITUXIMAB
     Route: 065

REACTIONS (6)
  - Acute kidney injury [Unknown]
  - Post transplant lymphoproliferative disorder [Recovered/Resolved]
  - Enterocolitis viral [Unknown]
  - Ileal perforation [Recovering/Resolving]
  - Intentional dose omission [Unknown]
  - Treatment noncompliance [Unknown]
